FAERS Safety Report 5584245-3 (Version None)
Quarter: 2008Q1

REPORT INFORMATION
  Report Type: 
  Country: None (occurrence: None)
  Receive Date: 20080108
  Receipt Date: 20080103
  Transmission Date: 20080703
  Serious: Yes (Other)
  Sender: FDA-Public Use
  Company Number: B0360117A

PATIENT
  Age: 25 Year
  Sex: Male

DRUGS (1)
  1. PAROXETINE HCL [Suspect]
     Indication: POST-TRAUMATIC STRESS DISORDER
     Route: 065
     Dates: start: 19990624

REACTIONS (14)
  - ABDOMINAL PAIN UPPER [None]
  - DEPRESSION [None]
  - DIZZINESS [None]
  - DRUG WITHDRAWAL SYNDROME [None]
  - DYSPNOEA [None]
  - GASTROINTESTINAL DISORDER [None]
  - HEADACHE [None]
  - INSOMNIA [None]
  - MEMORY IMPAIRMENT [None]
  - PANIC ATTACK [None]
  - PARAESTHESIA [None]
  - SUICIDE ATTEMPT [None]
  - TREMOR [None]
  - VISUAL ACUITY REDUCED [None]
